FAERS Safety Report 10971015 (Version 1)
Quarter: 2015Q1

REPORT INFORMATION
  Report Type: Spontaneous
  Country: CA (occurrence: CA)
  Receive Date: 20150331
  Receipt Date: 20150331
  Transmission Date: 20150721
  Serious: Yes (Other)
  Sender: FDA-Public Use
  Company Number: CA-ASTRAZENECA-2015SE29624

PATIENT
  Age: 27819 Day
  Sex: Male

DRUGS (1)
  1. FARXIGA [Suspect]
     Active Substance: DAPAGLIFLOZIN PROPANEDIOL
     Indication: TYPE 2 DIABETES MELLITUS
     Route: 048
     Dates: start: 20150304, end: 20150318

REACTIONS (7)
  - Pain [Not Recovered/Not Resolved]
  - Blood glucose increased [Unknown]
  - Urine odour abnormal [Recovered/Resolved]
  - Incontinence [Recovered/Resolved]
  - Abdominal pain upper [Not Recovered/Not Resolved]
  - Thirst [Unknown]
  - Polyuria [Recovered/Resolved]

NARRATIVE: CASE EVENT DATE: 20150304
